FAERS Safety Report 7683010-0 (Version None)
Quarter: 2011Q3

REPORT INFORMATION
  Report Type: 
  Country: None (occurrence: None)
  Receive Date: 20110812
  Receipt Date: 20110812
  Transmission Date: 20111222
  Serious: Yes (Other)
  Sender: FDA-Public Use
  Company Number: None

PATIENT
  Sex: Male
  Weight: 97.5234 kg

DRUGS (1)
  1. HALOPERIDOL [Suspect]
     Indication: MENTAL DISORDER
     Dosage: 50 DAY ONCE  TWICE A DAY
     Dates: start: 20110720

REACTIONS (15)
  - DEHYDRATION [None]
  - DEPRESSION [None]
  - AMNESIA [None]
  - MOVEMENT DISORDER [None]
  - FATIGUE [None]
  - SUICIDAL IDEATION [None]
  - EUPHORIC MOOD [None]
  - HYPERTENSION [None]
  - HEART RATE DECREASED [None]
  - ANGER [None]
  - VOMITING [None]
  - HEADACHE [None]
  - PERSONALITY CHANGE [None]
  - ASTHENIA [None]
  - HALLUCINATIONS, MIXED [None]
